FAERS Safety Report 18247035 (Version 1)
Quarter: 2020Q3

REPORT INFORMATION
  Report Type: Spontaneous
  Country: IN (occurrence: IN)
  Receive Date: 20200909
  Receipt Date: 20200909
  Transmission Date: 20201103
  Serious: Yes (Other)
  Sender: FDA-Public Use
  Company Number: IN-LUPIN PHARMACEUTICALS INC.-2020-05638

PATIENT
  Age: 20 Year
  Sex: Female

DRUGS (1)
  1. DESOGESTREL AND ETHINYL ESTRADIOL [Suspect]
     Active Substance: DESOGESTREL\ETHINYL ESTRADIOL
     Indication: POLYCYSTIC OVARIES
     Dosage: UNK
     Route: 048

REACTIONS (5)
  - Ataxia [Recovered/Resolved]
  - Diplopia [Recovered/Resolved]
  - Cerebrovascular accident [Recovered/Resolved]
  - Condition aggravated [Recovering/Resolving]
  - Hypercoagulation [Recovering/Resolving]
